FAERS Safety Report 26095303 (Version 1)
Quarter: 2025Q4

REPORT INFORMATION
  Report Type: Spontaneous
  Country: US (occurrence: US)
  Receive Date: 20251127
  Receipt Date: 20251127
  Transmission Date: 20260117
  Serious: Yes (Hospitalization)
  Sender: CARNEGIE PHARMACEUTICALS LLC
  Company Number: US-CARNEGIE-001557

PATIENT
  Age: 75 Year
  Sex: Male

DRUGS (4)
  1. STALEVO [Suspect]
     Active Substance: CARBIDOPA\ENTACAPONE\LEVODOPA
     Indication: Parkinson^s disease
     Route: 065
  2. CARBIDOPA\LEVODOPA [Suspect]
     Active Substance: CARBIDOPA\LEVODOPA
     Indication: Parkinson^s disease
     Route: 065
  3. DONEPEZIL [Suspect]
     Active Substance: DONEPEZIL
     Indication: Parkinson^s disease
     Route: 065
  4. RASAGILINE MESYLATE [Suspect]
     Active Substance: RASAGILINE MESYLATE
     Indication: Parkinson^s disease
     Route: 065

REACTIONS (2)
  - Therapeutic response shortened [Not Recovered/Not Resolved]
  - Condition aggravated [Not Recovered/Not Resolved]
